FAERS Safety Report 19968250 (Version 2)
Quarter: 2021Q4

REPORT INFORMATION
  Report Type: Spontaneous
  Country: IE (occurrence: IE)
  Receive Date: 20211019
  Receipt Date: 20211102
  Transmission Date: 20220303
  Serious: Yes (Hospitalization)
  Sender: FDA-Public Use
  Company Number: IE-BAXTER-2021BAX032009

PATIENT
  Age: 30 Year
  Sex: Female

DRUGS (2)
  1. SODIUM CHLORIDE [Suspect]
     Active Substance: SODIUM CHLORIDE
     Indication: Medication dilution
     Dosage: IN SV200 OVER 30 MINUTE INFUSION
     Route: 065
     Dates: start: 20211006, end: 202110
  2. DAPTOMYCIN [Suspect]
     Active Substance: DAPTOMYCIN
     Indication: Product used for unknown indication
     Dosage: IN SV200 OVER 30 MINUTE INFUSION
     Route: 065
     Dates: start: 20211006, end: 202110

REACTIONS (3)
  - Headache [Recovering/Resolving]
  - Chest pain [Recovering/Resolving]
  - Renal disorder [Recovering/Resolving]

NARRATIVE: CASE EVENT DATE: 20211001
